FAERS Safety Report 25971360 (Version 1)
Quarter: 2025Q4

REPORT INFORMATION
  Report Type: Report from Study
  Country: EU (occurrence: EU)
  Receive Date: 20251028
  Receipt Date: 20251028
  Transmission Date: 20260118
  Serious: Yes (Hospitalization)
  Sender: JOHNSON AND JOHNSON
  Company Number: EU-JNJFOC-20251027657

PATIENT
  Age: 59 Year
  Sex: Female

DRUGS (2)
  1. ESKETAMINE [Suspect]
     Active Substance: ESKETAMINE
     Indication: Major depression
     Dosage: ADDITIONAL DOSES: 18-APR-2024, 23-APR-2024, 25-APR-2024, 30-APR-2024, 02-MAY-2024, 07-MAY-2024.
     Route: 045
     Dates: start: 20240416, end: 20240510
  2. ESKETAMINE [Suspect]
     Active Substance: ESKETAMINE
     Dosage: ADDITIONAL DOSES ON: 21-MAY-2024, 06-JUN-2024, 11-JUN-2024, 19-JUN-2024, 26-JUN-2024, 03-JUL-2024, 1
     Route: 045
     Dates: start: 20240514, end: 20250910

REACTIONS (2)
  - Fall [Recovered/Resolved]
  - Radius fracture [Recovered/Resolved]

NARRATIVE: CASE EVENT DATE: 20250919
